FAERS Safety Report 5385610-X (Version None)
Quarter: 2007Q3

REPORT INFORMATION
  Report Type: 
  Country: None (occurrence: None)
  Receive Date: 20070712
  Receipt Date: 20070706
  Transmission Date: 20080115
  Serious: Yes (Other)
  Sender: FDA-Public Use
  Company Number: US-SANOFI-SYNTHELABO-A03200704485

PATIENT
  Age: 57 Year
  Sex: Female

DRUGS (4)
  1. M.V.I. [Concomitant]
     Dosage: UNK
     Route: 065
  2. CALCIUM CHLORIDE [Concomitant]
     Dosage: UNK
     Route: 065
  3. WELLBUTRIN XR [Concomitant]
     Dosage: UNK
     Route: 065
  4. AMBIEN [Suspect]
     Indication: INSOMNIA
     Dosage: 12.5 MG 3 - 4 TIMES/WEEK
     Route: 048
     Dates: start: 20070101, end: 20070101

REACTIONS (4)
  - HALLUCINATION [None]
  - ROAD TRAFFIC ACCIDENT [None]
  - SOMNOLENCE [None]
  - VISION BLURRED [None]
